FAERS Safety Report 18643071 (Version 4)
Quarter: 2021Q1

REPORT INFORMATION
  Report Type: Spontaneous
  Country: US (occurrence: US)
  Receive Date: 20201221
  Receipt Date: 20210210
  Transmission Date: 20210419
  Serious: No
  Sender: FDA-Public Use
  Company Number: US-PFIZER INC-2020105871

PATIENT
  Age: 83 Year
  Sex: Male
  Weight: 63.5 kg

DRUGS (4)
  1. TOVIAZ [Suspect]
     Active Substance: FESOTERODINE FUMARATE
     Indication: MICTURITION URGENCY
     Dosage: 8 MG, 2X/DAY
  2. TOVIAZ [Suspect]
     Active Substance: FESOTERODINE FUMARATE
     Indication: UROGENITAL DISORDER
     Dosage: UNK
  3. TOVIAZ [Suspect]
     Active Substance: FESOTERODINE FUMARATE
     Dosage: 8 MG, 1X/DAY
     Route: 048
  4. TOVIAZ [Suspect]
     Active Substance: FESOTERODINE FUMARATE
     Dosage: 8 MG, 3X/DAY 1 (ONE) TABLET ER 24 HR BY MOUTH DAILY X3 (THREE) X 90 (NINETY) TABLET)

REACTIONS (3)
  - Physical product label issue [Unknown]
  - Overdose [Unknown]
  - Mental disorder [Unknown]
